FAERS Safety Report 4998090-0 (Version None)
Quarter: 2006Q2

REPORT INFORMATION
  Report Type: 
  Country: None (occurrence: None)
  Receive Date: 20060510
  Receipt Date: 20051003
  Transmission Date: 20061013
  Serious: Yes (Hospitalization)
  Sender: FDA-Public Use
  Company Number: US-MERCK-0510USA02662

PATIENT
  Age: 67 Year
  Sex: Male
  Weight: 95 kg

DRUGS (4)
  1. VIOXX [Suspect]
     Indication: ARTHRITIS
     Route: 048
     Dates: start: 20000616, end: 20011110
  2. VIOXX [Suspect]
     Indication: OSTEOARTHRITIS
     Route: 048
     Dates: start: 20000616, end: 20011110
  3. HYDROCHLOROTHIAZIDE [Concomitant]
     Route: 065
     Dates: end: 20011110
  4. AVANDIA [Concomitant]
     Route: 065
     Dates: end: 20011110

REACTIONS (14)
  - ACUTE PULMONARY OEDEMA [None]
  - ANAEMIA [None]
  - ANGIOPATHY [None]
  - ARTERIAL OCCLUSIVE DISEASE [None]
  - ATRIAL FIBRILLATION [None]
  - ATRIAL FLUTTER [None]
  - CARDIAC FAILURE CONGESTIVE [None]
  - CARDIOMEGALY [None]
  - CHEST PAIN [None]
  - HAEMATURIA [None]
  - HYPERTENSION [None]
  - MYOCARDIAL INFARCTION [None]
  - TACHYCARDIA [None]
  - URINARY TRACT INFECTION [None]
